FAERS Safety Report 22075652 (Version 2)
Quarter: 2025Q2

REPORT INFORMATION
  Report Type: Spontaneous
  Country: BE (occurrence: BE)
  Receive Date: 20230308
  Receipt Date: 20250528
  Transmission Date: 20250717
  Serious: Yes (Life-Threatening, Hospitalization, Other)
  Sender: PFIZER
  Company Number: BE-Accord-302302

PATIENT
  Age: 38 Year
  Sex: Female
  Weight: 61 kg

DRUGS (13)
  1. CARBOPLATIN [Suspect]
     Active Substance: CARBOPLATIN
     Indication: Cervix cancer metastatic
     Dosage: UNK, EVERY 3 WEEKS, 5 AUC; 1Q3W
     Dates: start: 20221202, end: 20221202
  2. CARBOPLATIN [Suspect]
     Active Substance: CARBOPLATIN
     Dosage: UNK, EVERY 3 WEEKS, 4 AUC; 1Q3W
     Dates: start: 20221229, end: 20230120
  3. PEMBROLIZUMAB [Suspect]
     Active Substance: PEMBROLIZUMAB
     Indication: Cervix cancer metastatic
     Dosage: 200 MG, EVERY 3 WEEKS, 1Q3W
     Dates: start: 20221202, end: 20221202
  4. PEMBROLIZUMAB [Suspect]
     Active Substance: PEMBROLIZUMAB
     Dosage: 200 MG, EVERY 3 WEEKS, 1Q3W
     Dates: start: 20221229, end: 20230120
  5. TISOTUMAB VEDOTIN [Suspect]
     Active Substance: TISOTUMAB VEDOTIN
     Indication: Cervix cancer metastatic
     Dosage: 1.3 MG/KG, EVERY 3 WEEKS, 1Q3W
     Dates: start: 20221229, end: 20230120
  6. TISOTUMAB VEDOTIN [Suspect]
     Active Substance: TISOTUMAB VEDOTIN
     Dosage: 2 MG/KG, EVERY 3 WEEKS, 1Q3W
     Dates: start: 20221202, end: 20221202
  7. ULTRA K [Concomitant]
     Dates: start: 20221224
  8. FOSFOMYCIN [Concomitant]
     Active Substance: FOSFOMYCIN
     Dates: start: 202302, end: 202302
  9. FURADANTIN [Concomitant]
     Active Substance: NITROFURANTOIN
     Dates: start: 202302, end: 202302
  10. MEROPENEM [Concomitant]
     Active Substance: MEROPENEM
     Dates: start: 20230213
  11. PANTOPRAZOLE SODIUM [Concomitant]
     Active Substance: PANTOPRAZOLE SODIUM
     Dates: start: 20221225, end: 20230209
  12. HYALURONATE SODIUM\TREHALOSE [Concomitant]
     Active Substance: HYALURONATE SODIUM\TREHALOSE
     Dates: start: 20221129
  13. PRIMPERAN [Concomitant]
     Active Substance: METOCLOPRAMIDE HYDROCHLORIDE
     Dates: start: 20221203, end: 20230209

REACTIONS (2)
  - Thrombocytopenia [Not Recovered/Not Resolved]
  - Off label use [Unknown]

NARRATIVE: CASE EVENT DATE: 20230210
